FAERS Safety Report 7088862-3 (Version None)
Quarter: 2010Q4

REPORT INFORMATION
  Report Type: 
  Country: None (occurrence: None)
  Receive Date: 20101108
  Receipt Date: 20101103
  Transmission Date: 20110411
  Serious: Yes (Other)
  Sender: FDA-Public Use
  Company Number: HU-PFIZER INC-2009302509

PATIENT
  Sex: Female

DRUGS (5)
  1. ZELDOX [Suspect]
     Indication: SCHIZOPHRENIA
     Dosage: 80 MG, 2X/DAY
     Route: 048
     Dates: start: 20090502, end: 20090625
  2. XANAX [Suspect]
     Indication: ANXIETY
     Dosage: UNK
     Route: 048
     Dates: start: 20090502, end: 20090625
  3. RIVOTRIL [Concomitant]
     Dosage: UNK
     Route: 048
  4. TRUXAL [Concomitant]
     Dosage: UNK
     Route: 048
  5. AKINETON [Concomitant]
     Dosage: UNK
     Route: 048

REACTIONS (1)
  - PHARYNGEAL OEDEMA [None]
